FAERS Safety Report 8640185 (Version 3)
Quarter: 2014Q2

REPORT INFORMATION
  Report Type: Report from Study
  Country: US (occurrence: US)
  Receive Date: 20120628
  Receipt Date: 20140626
  Transmission Date: 20141212
  Serious: Yes (Other)
  Sender: FDA-Public Use
  Company Number: US-MYLANLABS-2012S1000228

PATIENT
  Age: 38 Year
  Sex: Male

DRUGS (11)
  1. CLOZAPINE TABLETS [Suspect]
     Route: 048
     Dates: end: 20120220
  2. CLOZAPINE TABLETS [Suspect]
     Route: 048
     Dates: end: 20120220
  3. CLOZAPINE TABLETS [Suspect]
     Route: 048
     Dates: start: 2012, end: 2012
  4. CLOZAPINE TABLETS [Suspect]
     Route: 048
     Dates: start: 2012, end: 2012
  5. CLOZAPINE TABLETS [Suspect]
     Route: 048
     Dates: start: 2013
  6. TRAZODONE [Concomitant]
  7. ABILIFY [Concomitant]
  8. INVEGA [Concomitant]
  9. TOPAMAX [Concomitant]
  10. LUVOX [Concomitant]
  11. LISINOPRIL [Concomitant]

REACTIONS (2)
  - Granulocytopenia [Not Recovered/Not Resolved]
  - Leukopenia [Recovered/Resolved]
